FAERS Safety Report 21779749 (Version 1)
Quarter: 2022Q4

REPORT INFORMATION
  Report Type: Spontaneous
  Country: JP (occurrence: JP)
  Receive Date: 20221226
  Receipt Date: 20221226
  Transmission Date: 20230113
  Serious: Yes (Other)
  Sender: FDA-Public Use
  Company Number: JP-GSKNCCC-Case-01622673_AE-64916

PATIENT
  Sex: Female

DRUGS (1)
  1. BOTOX [Suspect]
     Active Substance: ONABOTULINUMTOXINA
     Indication: Product used for unknown indication
     Dosage: UNK, SINGLE

REACTIONS (4)
  - Abortion induced [Unknown]
  - Exposure during pregnancy [Unknown]
  - Contraindicated product administered [Unknown]
  - Product use in unapproved indication [Unknown]
